FAERS Safety Report 7295948-7 (Version None)
Quarter: 2011Q1

REPORT INFORMATION
  Report Type: 
  Country: None (occurrence: None)
  Receive Date: 20110216
  Receipt Date: 20110207
  Transmission Date: 20110831
  Serious: Yes (Hospitalization)
  Sender: FDA-Public Use
  Company Number: FR-ASTRAZENECA-2011SE08130

PATIENT
  Age: 81 Year
  Sex: Male

DRUGS (9)
  1. ATACAND [Suspect]
     Route: 048
     Dates: end: 20101210
  2. ZOPICLONE [Concomitant]
     Route: 048
  3. TEMESTA [Concomitant]
     Route: 048
  4. ALFUZOSIN [Suspect]
     Route: 048
  5. ATACAND [Suspect]
     Route: 048
     Dates: start: 20101201
  6. FUROSEMIDE [Suspect]
     Route: 048
     Dates: end: 20101210
  7. SERESTA [Concomitant]
     Route: 048
  8. MEMANTINE HCL [Suspect]
     Route: 048
     Dates: end: 20101210
  9. RISPERDAL [Suspect]
     Route: 048

REACTIONS (4)
  - EPILEPSY [None]
  - HYPOVOLAEMIC SHOCK [None]
  - HYPOTENSION [None]
  - DEHYDRATION [None]
